FAERS Safety Report 9124991 (Version 1)
Quarter: 2013Q1

REPORT INFORMATION
  Report Type: Spontaneous
  Country: US (occurrence: US)
  Receive Date: 20130227
  Receipt Date: 20130227
  Transmission Date: 20140127
  Serious: No
  Sender: FDA-Public Use
  Company Number: US-PFIZER INC-2013068042

PATIENT
  Age: 42 Year
  Sex: Female
  Weight: 90 kg

DRUGS (2)
  1. PREMARIN VAGINAL CREAM [Suspect]
     Indication: VULVOVAGINAL DRYNESS
     Dosage: 0.6 G, ALTERNATE DAY
     Route: 067
     Dates: start: 20121213
  2. IBUPROFEN [Concomitant]
     Indication: PAIN
     Dosage: 1 DF, CYCLIC, EVERY 8 HOURS
     Route: 048

REACTIONS (1)
  - Drug ineffective [Unknown]
